FAERS Safety Report 9233883 (Version 1)
Quarter: 2013Q2

REPORT INFORMATION
  Report Type: Spontaneous
  Country: BR (occurrence: BR)
  Receive Date: 20130416
  Receipt Date: 20130416
  Transmission Date: 20140414
  Serious: Yes (Hospitalization, Other)
  Sender: FDA-Public Use
  Company Number: BR-PFIZER INC-2013117589

PATIENT
  Age: 58 Year
  Sex: Male

DRUGS (7)
  1. ATENOLOL [Suspect]
     Dosage: UNK, DAILY
     Route: 065
     Dates: start: 2006
  2. ATACAND [Suspect]
     Indication: HYPERTENSION
     Dosage: 16 MG, 1X/DAY
     Route: 048
     Dates: start: 2006
  3. SOMALGIN [Concomitant]
     Dosage: UNK, DAILY
     Route: 065
     Dates: start: 2006
  4. METFORMIN HYDROCHLORIDE [Concomitant]
     Indication: DIABETES MELLITUS
     Dosage: UNK, DAILY
     Route: 065
     Dates: start: 2010
  5. JANUMET [Concomitant]
     Indication: DIABETES MELLITUS
     Dosage: UNK, DAILY
     Route: 065
     Dates: start: 2010
  6. FENOFIBRATE [Concomitant]
     Dosage: UNK, DAILY
     Route: 065
     Dates: start: 2006
  7. LIPITOR [Concomitant]
     Dosage: UNK, DAILY
     Route: 065
     Dates: start: 2006

REACTIONS (3)
  - Diabetes mellitus [Recovered/Resolved]
  - Coronary artery occlusion [Recovered/Resolved]
  - Chest pain [Recovered/Resolved]
